FAERS Safety Report 9124142 (Version 4)
Quarter: 2013Q4

REPORT INFORMATION
  Report Type: Spontaneous
  Country: US (occurrence: US)
  Receive Date: 20130116
  Receipt Date: 20131108
  Transmission Date: 20140711
  Serious: Yes (Hospitalization, Other)
  Sender: FDA-Public Use
  Company Number: US-009507513-1301USA006340

PATIENT
  Sex: 0
  Weight: 60.77 kg

DRUGS (11)
  1. FOSAMAX [Suspect]
     Indication: OSTEOPENIA
     Dosage: 70 MG, QW
     Route: 048
     Dates: start: 200202, end: 200807
  2. ALENDRONATE SODIUM [Suspect]
     Indication: OSTEOPENIA
     Dosage: 70 MG, QW
     Dates: start: 200807, end: 200810
  3. VITAMIN D (UNSPECIFIED) [Concomitant]
     Dosage: 800-5000 IU, QD
     Route: 048
     Dates: start: 1990
  4. CALCIUM (UNSPECIFIED) [Concomitant]
     Dosage: 500-1000 MG, QD
     Route: 048
     Dates: start: 1990
  5. MAGNESIUM (UNSPECIFIED) [Concomitant]
     Dosage: 400 MG, QD
     Route: 048
     Dates: start: 1990
  6. VITAMIN B (UNSPECIFIED) [Concomitant]
     Dosage: 1000 MICROGRAM, QD
     Route: 048
     Dates: start: 1990
  7. TURMERIC [Concomitant]
     Dosage: 500 MG, QD
     Dates: start: 1990
  8. OMEGA-3 MARINE TRIGLYCERIDES [Concomitant]
     Dosage: 2000 MG, QD
     Route: 048
     Dates: start: 1990
  9. COCONUT OIL [Concomitant]
     Dosage: 2000 MG, QD
     Route: 048
     Dates: start: 1990
  10. VITAMINS (UNSPECIFIED) [Concomitant]
     Dosage: 2 TABLETS QD
     Route: 048
     Dates: start: 1990
  11. FORTEO [Concomitant]
     Dosage: UNK

REACTIONS (22)
  - Intramedullary rod insertion [Unknown]
  - Intramedullary rod insertion [Unknown]
  - Foot fracture [Unknown]
  - Deep vein thrombosis [Not Recovered/Not Resolved]
  - Femur fracture [Not Recovered/Not Resolved]
  - Femur fracture [Not Recovered/Not Resolved]
  - Wrist fracture [Not Recovered/Not Resolved]
  - Varicose vein [Unknown]
  - Varicose vein [Unknown]
  - Vitamin D deficiency [Unknown]
  - Endodontic procedure [Unknown]
  - Hormone therapy [Unknown]
  - Infection [Unknown]
  - Toe operation [Unknown]
  - Hyperkeratosis [Unknown]
  - Ligament rupture [Unknown]
  - Varicose vein operation [Unknown]
  - Varicose vein operation [Unknown]
  - Local swelling [Unknown]
  - Osteoporosis [Unknown]
  - Musculoskeletal pain [Unknown]
  - Arthralgia [Unknown]
